FAERS Safety Report 7918031-3 (Version None)
Quarter: 2011Q4

REPORT INFORMATION
  Report Type: 
  Country: None (occurrence: None)
  Receive Date: 20111114
  Receipt Date: 20111028
  Transmission Date: 20120403
  Serious: Yes (Other)
  Sender: FDA-Public Use
  Company Number: 1000025080

PATIENT
  Age: 45 Year
  Sex: Male

DRUGS (3)
  1. VIIBRYD [Suspect]
     Indication: DEPRESSION
     Dosage: 20 MG (20 MG, 1 IN 1 D),ORAL
     Route: 048
     Dates: start: 20111001, end: 20111001
  2. LITHIUM CARBONATE [Concomitant]
     Indication: BIPOLAR DISORDER
  3. VIIBRYD [Suspect]
     Indication: DEPRESSION
     Dosage: 10 MG (10 MG,1 IN 1 D),ORAL
     Route: 048
     Dates: start: 20111001, end: 20111001

REACTIONS (3)
  - SUICIDAL IDEATION [None]
  - AGITATION [None]
  - ANXIETY [None]
